FAERS Safety Report 7137397-8 (Version None)
Quarter: 2010Q4

REPORT INFORMATION
  Report Type: 
  Country: None (occurrence: None)
  Receive Date: 20101206
  Receipt Date: 20091125
  Transmission Date: 20110411
  Serious: Yes (Death, Hospitalization)
  Sender: FDA-Public Use
  Company Number: US-ACTELION-A-US2008-19939

PATIENT

DRUGS (5)
  1. TRACLEER [Suspect]
     Indication: PULMONARY ARTERIAL HYPERTENSION
     Dosage: 125 MG, BID
     Dates: start: 20080804, end: 20091123
  2. TRACLEER [Suspect]
     Dosage: 62.5 MG, BID
     Route: 048
     Dates: start: 20080221, end: 20091123
  3. SYMBICORT [Concomitant]
  4. PROAIR HFA [Concomitant]
  5. REVATIO [Concomitant]

REACTIONS (19)
  - CONTUSION [None]
  - COUGH [None]
  - DARK CIRCLES UNDER EYES [None]
  - DEATH [None]
  - DIZZINESS [None]
  - DRY EYE [None]
  - DYSPNOEA [None]
  - EYE SWELLING [None]
  - FLUSHING [None]
  - GAIT DISTURBANCE [None]
  - LIVER FUNCTION TEST ABNORMAL [None]
  - OEDEMA PERIPHERAL [None]
  - PAIN [None]
  - PRURITUS [None]
  - PULMONARY ARTERIAL HYPERTENSION [None]
  - PYREXIA [None]
  - SKIN HAEMORRHAGE [None]
  - SWELLING FACE [None]
  - YELLOW SKIN [None]
